FAERS Safety Report 6524565-9 (Version None)
Quarter: 2010Q1

REPORT INFORMATION
  Report Type: 
  Country: None (occurrence: None)
  Receive Date: 20100104
  Receipt Date: 20091229
  Transmission Date: 20100710
  Serious: Yes (Hospitalization)
  Sender: FDA-Public Use
  Company Number: FR-ROCHE-677077

PATIENT
  Sex: Female

DRUGS (4)
  1. KYTRIL [Suspect]
     Indication: PREMEDICATION
     Dosage: FORM: INJECTABLE SOLUTION, STRENGTH: 3 MG/3ML
     Route: 042
     Dates: start: 20090930, end: 20090930
  2. GEMZAR [Suspect]
     Indication: BREAST CANCER
     Route: 042
     Dates: start: 20090930, end: 20090930
  3. ELOXATIN [Suspect]
     Indication: BREAST CANCER
     Route: 042
     Dates: start: 20090930, end: 20090930
  4. METHYLPREDNISOLONE [Concomitant]
     Indication: PREMEDICATION
     Route: 042

REACTIONS (3)
  - DYSPHAGIA [None]
  - DYSPNOEA [None]
  - PARALYSIS [None]
